FAERS Safety Report 5627616-9 (Version None)
Quarter: 2008Q1

REPORT INFORMATION
  Report Type: 
  Country: None (occurrence: None)
  Receive Date: 20080215
  Receipt Date: 20080211
  Transmission Date: 20080703
  Serious: Yes (Death, Other)
  Sender: FDA-Public Use
  Company Number: CA-BAYER-200813667NA

PATIENT
  Sex: Female

DRUGS (2)
  1. TRASYLOL [Suspect]
     Indication: DRUG USE FOR UNKNOWN INDICATION
     Dosage: AS USED: 10000 KIU
  2. TRASYLOL [Suspect]

REACTIONS (4)
  - CARDIO-RESPIRATORY ARREST [None]
  - LACTIC ACIDOSIS [None]
  - POST PROCEDURAL HAEMORRHAGE [None]
  - UNEVALUABLE EVENT [None]
